FAERS Safety Report 4945891-0 (Version None)
Quarter: 2006Q1

REPORT INFORMATION
  Report Type: 
  Country: None (occurrence: None)
  Receive Date: 20060117
  Receipt Date: 20050114
  Transmission Date: 20060701
  Serious: Yes (Other)
  Sender: FDA-Public Use
  Company Number: A03200500169

PATIENT
  Sex: Male

DRUGS (8)
  1. PLAVIX [Suspect]
     Indication: MYOCARDIAL INFARCTION
     Dosage: 75 MG QD - ORAL
     Route: 048
     Dates: start: 20030715
  2. PLAVIX [Suspect]
     Indication: STENT PLACEMENT
     Dosage: 75 MG QD - ORAL
     Route: 048
     Dates: start: 20030715
  3. ACETYLSALICYLIC ACID SRT [Concomitant]
  4. CILOSTAZOL [Concomitant]
  5. AMLODIPINE BESYLATE [Concomitant]
  6. PANTOPRAZOLE SODIUM [Concomitant]
  7. ATORVASTATIN CALCIUM [Concomitant]
  8. GLYCERYL TRINITRATE [Concomitant]

REACTIONS (1)
  - CORONARY ARTERY OCCLUSION [None]
